FAERS Safety Report 9323399 (Version 2)
Quarter: 2013Q3

REPORT INFORMATION
  Report Type: Report from Study
  Country: TW (occurrence: TW)
  Receive Date: 20130603
  Receipt Date: 20130708
  Transmission Date: 20140515
  Serious: Yes (Hospitalization, Other)
  Sender: FDA-Public Use
  Company Number: TW-GENZYME-CERZ-1003029

PATIENT
  Age: 34 Year
  Sex: Female
  Weight: 38 kg

DRUGS (28)
  1. CEREZYME [Suspect]
     Indication: GAUCHER^S DISEASE
     Dosage: 60 U/KG, Q2W
     Route: 042
     Dates: start: 19990701
  2. CEREZYME [Suspect]
     Dosage: 90 U/KG, Q2W
     Route: 042
     Dates: start: 20021219
  3. VOLTAREN [Concomitant]
     Indication: PRODUCT USED FOR UNKNOWN INDICATION
     Dosage: 1 DF, PRN
     Route: 048
     Dates: start: 20041021, end: 20050710
  4. AREDIA [Concomitant]
     Indication: PRODUCT USED FOR UNKNOWN INDICATION
     Dosage: 20 MG (IN N/S 200C.C.), Q4W
     Route: 042
     Dates: start: 20040311
  5. AREDIA [Concomitant]
     Dosage: 30 MG (IN N/S 300C.C.), Q4W
     Route: 042
     Dates: start: 20040506, end: 20040506
  6. AREDIA [Concomitant]
     Dosage: UNK
     Route: 042
  7. VOLTAN SR [Concomitant]
     Indication: PRODUCT USED FOR UNKNOWN INDICATION
     Dosage: 1 DF, BID
     Route: 048
     Dates: start: 20060316
  8. VOLTAN SR [Concomitant]
     Dosage: 1 DF, QD
     Route: 048
     Dates: start: 20060803, end: 20060803
  9. VOLTAN SR [Concomitant]
     Dosage: 1 DF, BID
     Route: 048
     Dates: start: 20071107, end: 20071107
  10. VOLTAN SR [Concomitant]
     Dosage: 1 DF, QD
     Route: 048
     Dates: start: 20080423, end: 20080423
  11. VOLTAN SR [Concomitant]
     Dosage: 1 DF, BID
     Route: 048
     Dates: start: 20090325, end: 20090325
  12. VOLTAN SR [Concomitant]
     Dosage: 1 DF, QD
     Route: 048
     Dates: start: 20091230, end: 20091230
  13. VOLTAN SR [Concomitant]
     Dosage: 1 DF, UNK
     Route: 048
  14. XYZAL [Concomitant]
     Indication: PRODUCT USED FOR UNKNOWN INDICATION
     Dosage: 1 DF, QD
     Route: 048
     Dates: start: 20070201
  15. XYZAL [Concomitant]
     Dosage: 1 DF, UNK
     Route: 048
     Dates: start: 20070201, end: 20090930
  16. TETRACYCLINE [Concomitant]
     Indication: PRODUCT USED FOR UNKNOWN INDICATION
     Dosage: 1 UNK, BID
     Route: 047
     Dates: start: 20070523, end: 20111012
  17. ASPIRIN PROTECT [Concomitant]
     Indication: PRODUCT USED FOR UNKNOWN INDICATION
     Dosage: 1 DF, QD
     Route: 048
     Dates: start: 20070706, end: 20080116
  18. STUGERON [Concomitant]
     Indication: PRODUCT USED FOR UNKNOWN INDICATION
     Dosage: 1 DF, BID
     Route: 048
     Dates: start: 20120723
  19. STUGERON [Concomitant]
     Dosage: 1 DF, QD
     Route: 048
     Dates: start: 20120820, end: 20120820
  20. STUGERON [Concomitant]
     Dosage: UNK
     Route: 048
     Dates: end: 20121015
  21. B COMPLEX [Concomitant]
     Indication: PRODUCT USED FOR UNKNOWN INDICATION
     Dosage: 1 DF, BID
     Route: 048
     Dates: start: 20120723
  22. B COMPLEX [Concomitant]
     Dosage: 1 DF, QD
     Route: 048
     Dates: start: 20120820, end: 20120820
  23. B COMPLEX [Concomitant]
     Dosage: UNK
     Route: 048
     Dates: end: 20121015
  24. SECORIN [Concomitant]
     Indication: PRODUCT USED FOR UNKNOWN INDICATION
     Dosage: 1 DF, BID
     Route: 048
     Dates: start: 20120723
  25. SECORIN [Concomitant]
     Dosage: 1 DF, QD
     Route: 048
     Dates: start: 20120820, end: 20120820
  26. SECORIN [Concomitant]
     Dosage: UNK
     Route: 048
     Dates: end: 20121015
  27. CEFAZOLIN [Concomitant]
     Indication: PRODUCT USED FOR UNKNOWN INDICATION
     Dosage: UNK
     Route: 065
  28. KEFLEX [Concomitant]
     Indication: PRODUCT USED FOR UNKNOWN INDICATION
     Dosage: UNK
     Route: 048

REACTIONS (2)
  - Pulmonary arteriovenous fistula [Not Recovered/Not Resolved]
  - Thrombocytopenia [Recovered/Resolved]
